FAERS Safety Report 26062530 (Version 1)
Quarter: 2025Q4

REPORT INFORMATION
  Report Type: Spontaneous
  Country: US (occurrence: US)
  Receive Date: 20251119
  Receipt Date: 20251119
  Transmission Date: 20260118
  Serious: Yes (Other)
  Sender: COOPERSURGICAL
  Company Number: US-COOPERSURGICAL, INC.-2025CPS000091

PATIENT
  Age: 49 Year
  Sex: Female
  Weight: 63.492 kg

DRUGS (1)
  1. PARAGARD T 380A [Suspect]
     Active Substance: COPPER
     Indication: Contraception
     Dosage: UNK
     Route: 015
     Dates: start: 20150330, end: 20240620

REACTIONS (15)
  - Surgery [Recovered/Resolved]
  - Postmenopausal haemorrhage [Unknown]
  - Device breakage [Recovered/Resolved]
  - Foreign body in reproductive tract [Recovered/Resolved]
  - Complication of device removal [Recovered/Resolved]
  - Embedded device [Recovered/Resolved]
  - Endometritis [Unknown]
  - Emotional distress [Unknown]
  - Urinary tract infection [Unknown]
  - Procedural haemorrhage [Recovered/Resolved]
  - Vulvovaginal dryness [Unknown]
  - Complication associated with device [Recovered/Resolved]
  - Menstruation irregular [Recovered/Resolved]
  - Device dislocation [Recovered/Resolved]
  - Hypomenorrhoea [Unknown]

NARRATIVE: CASE EVENT DATE: 20230522
